FAERS Safety Report 12471342 (Version 1)
Quarter: 2016Q2

REPORT INFORMATION
  Report Type: Spontaneous
  Country: US (occurrence: None)
  Receive Date: 20160615
  Receipt Date: 20160615
  Transmission Date: 20160815
  Serious: No
  Sender: FDA-Public Use
  Company Number: None

PATIENT
  Age: 57 Year
  Sex: Female

DRUGS (1)
  1. NUCALA [Suspect]
     Active Substance: MEPOLIZUMAB
     Indication: CHRONIC OBSTRUCTIVE PULMONARY DISEASE
     Dosage: 100 MG EVERY 4 WEEKS SUB Q INJECTION
     Route: 058
     Dates: start: 20160509, end: 20160609

REACTIONS (1)
  - Lip swelling [None]

NARRATIVE: CASE EVENT DATE: 20160509
